FAERS Safety Report 8860690 (Version 1)
Quarter: 2012Q4

REPORT INFORMATION
  Report Type: 
  Country: US (occurrence: US)
  Receive Date: 20121025
  Receipt Date: 20121025
  Transmission Date: 20130627
  Serious: No
  Sender: FDA-Public Use
  Company Number: US-ASTRAZENECA-2012SE04200

PATIENT
  Age: 82 Year
  Sex: Male
  Weight: 81.2 kg

DRUGS (4)
  1. METOPROLOL [Suspect]
     Route: 048
  2. CRESTOR [Suspect]
     Indication: BLOOD CHOLESTEROL
     Route: 048
  3. ASPIRIN [Suspect]
     Route: 065
  4. DIOVAN [Suspect]
     Route: 065

REACTIONS (1)
  - Rhinorrhoea [Unknown]
